FAERS Safety Report 20638435 (Version 1)
Quarter: 2022Q1

REPORT INFORMATION
  Report Type: Spontaneous
  Country: TH (occurrence: TH)
  Receive Date: 20220325
  Receipt Date: 20220325
  Transmission Date: 20220424
  Serious: Yes (Hospitalization)
  Sender: FDA-Public Use
  Company Number: TH-DSPHARMA-2022DSP003711

PATIENT
  Age: 17 Year
  Sex: Male

DRUGS (10)
  1. LATUDA [Suspect]
     Active Substance: LURASIDONE HYDROCHLORIDE
     Indication: Bipolar I disorder
     Dosage: 40 MG
     Route: 048
     Dates: start: 20211206
  2. LATUDA [Suspect]
     Active Substance: LURASIDONE HYDROCHLORIDE
     Indication: Depression
     Dosage: 80 MG
     Route: 048
  3. LATUDA [Suspect]
     Active Substance: LURASIDONE HYDROCHLORIDE
     Dosage: 120 MG
     Route: 048
  4. LATUDA [Suspect]
     Active Substance: LURASIDONE HYDROCHLORIDE
     Dosage: 160 MG
     Route: 048
  5. LATUDA [Suspect]
     Active Substance: LURASIDONE HYDROCHLORIDE
     Dosage: 120 MG
     Route: 048
  6. VALPROATE SODIUM [Suspect]
     Active Substance: VALPROATE SODIUM
     Indication: Bipolar I disorder
     Dosage: 1700 MG
     Route: 048
     Dates: start: 20211030
  7. SEROQUEL [Suspect]
     Active Substance: QUETIAPINE FUMARATE
     Indication: Bipolar I disorder
     Dosage: 200 MG
     Route: 048
     Dates: start: 20211030, end: 20220212
  8. LITHIUM [Suspect]
     Active Substance: LITHIUM
     Indication: Bipolar I disorder
     Dosage: 900 MG
     Route: 048
     Dates: start: 20211129
  9. CLONAZEPAM [Concomitant]
     Active Substance: CLONAZEPAM
     Dosage: 2 MG
     Route: 065
     Dates: start: 20211101
  10. ETIFOXINE [Concomitant]
     Active Substance: ETIFOXINE
     Dosage: 100 MG
     Route: 065
     Dates: start: 20211213, end: 20220131

REACTIONS (12)
  - COVID-19 [Recovered/Resolved]
  - Drug ineffective [Recovered/Resolved]
  - Drug ineffective [Recovered/Resolved]
  - Disturbance in attention [Unknown]
  - Somnolence [Recovered/Resolved]
  - Muscle rigidity [Unknown]
  - Stiff tongue [Unknown]
  - Tremor [Unknown]
  - Blunted affect [Unknown]
  - Depressed mood [Recovered/Resolved]
  - Anxiety [Recovered/Resolved]
  - Prescribed overdose [Unknown]

NARRATIVE: CASE EVENT DATE: 20211201
